FAERS Safety Report 8055957-7 (Version None)
Quarter: 2012Q1

REPORT INFORMATION
  Report Type: 
  Country: None (occurrence: None)
  Receive Date: 20120119
  Receipt Date: 20120109
  Transmission Date: 20120608
  Serious: Yes (Hospitalization, Other)
  Sender: FDA-Public Use
  Company Number: US-BAYER-2010-002077

PATIENT
  Age: 32 Year
  Sex: Female

DRUGS (16)
  1. YASMIN [Suspect]
     Indication: PRODUCT USED FOR UNKNOWN INDICATION
  2. ADIPEX [Concomitant]
     Dosage: 37.5 MG, UNK
     Route: 048
     Dates: start: 20071101
  3. CARAFATE [Concomitant]
     Dosage: 1 G, MT
     Dates: start: 20071009
  4. LEXAPRO [Concomitant]
     Dosage: 10 MG, QD
     Route: 048
     Dates: start: 20071001
  5. VERAMYST [Concomitant]
     Dosage: UNK
     Dates: start: 20071101
  6. TRAMADOL HCL [Concomitant]
     Indication: BACK PAIN
     Dosage: UNK
     Route: 048
     Dates: start: 20050101
  7. XANAX [Concomitant]
     Dosage: 0.05 MG, TID
     Route: 048
     Dates: start: 20071017
  8. CARAFATE [Concomitant]
     Dosage: 1 G, HS
     Dates: start: 20071009
  9. YAZ [Suspect]
     Indication: CONTRACEPTION
     Dosage: UNK
     Dates: start: 20071101, end: 20080301
  10. ACETAMINOPHEN [Concomitant]
     Dosage: UNK
     Route: 048
     Dates: start: 20071009
  11. CHANTIX [Concomitant]
     Dosage: 1 MG, TID
     Route: 048
     Dates: start: 20071001
  12. ABILIFY [Concomitant]
  13. PREVACID [Concomitant]
     Dosage: UNK
     Route: 048
     Dates: start: 20071009
  14. AMBIEN [Concomitant]
     Dosage: 5 MG, HS
     Route: 048
     Dates: start: 20071001
  15. PHENTERMINE [Concomitant]
     Dosage: UNK
     Route: 048
     Dates: start: 20080115
  16. VITAMIN B-12 [Concomitant]
     Dosage: UNK
     Dates: start: 20071001

REACTIONS (4)
  - PANCREATITIS [None]
  - CHOLELITHIASIS [None]
  - CHOLECYSTITIS [None]
  - GALLBLADDER INJURY [None]
